FAERS Safety Report 6761819-5 (Version None)
Quarter: 2010Q2

REPORT INFORMATION
  Report Type: 
  Country: None (occurrence: None)
  Receive Date: 20100609
  Receipt Date: 20100607
  Transmission Date: 20101027
  Serious: Yes (Death, Hospitalization)
  Sender: FDA-Public Use
  Company Number: GB-WYE-G06232010

PATIENT
  Age: 67 Year
  Sex: Male

DRUGS (8)
  1. IBUPROFEN [Suspect]
     Dosage: 1.2G FREQUENCY UNKNOWN
     Route: 048
     Dates: start: 20091101, end: 20100505
  2. AMIAS [Suspect]
     Route: 048
     Dates: start: 20050101, end: 20100505
  3. SIMVASTATIN [Concomitant]
     Dosage: 20MG FREQUENCY UNKNOWN
     Route: 048
     Dates: start: 20050101, end: 20100505
  4. ERLOTINIB [Concomitant]
     Dosage: UNKNOWN
     Dates: start: 20100314, end: 20100401
  5. PARACETAMOL [Concomitant]
     Dosage: 4G FREQUENCY UNKNOWN
     Route: 048
     Dates: start: 20091101, end: 20100507
  6. POTASSIUM [Concomitant]
     Dosage: UNKNOWN
     Route: 048
  7. DALTEPARIN SODIUM [Suspect]
     Indication: LUNG NEOPLASM MALIGNANT
     Dosage: UNKNOWN
     Dates: start: 20091203, end: 20100505
  8. ADALAT [Concomitant]
     Dosage: 20MG, FREQUENCY UNKNOWN
     Route: 048
     Dates: start: 20050101, end: 20100505

REACTIONS (4)
  - DISEASE PROGRESSION [None]
  - LUNG ADENOCARCINOMA [None]
  - PLEURAL EFFUSION [None]
  - RENAL FAILURE [None]
